FAERS Safety Report 9183112 (Version 1)
Quarter: 2012Q4

REPORT INFORMATION
  Report Type: 
  Country: BR (occurrence: BR)
  Receive Date: 20121030
  Receipt Date: 20121030
  Transmission Date: 20130627
  Serious: Yes (Other)
  Sender: FDA-Public Use
  Company Number: BR-AMGEN-BRASP2012068000

PATIENT
  Age: 30 Year
  Sex: Male
  Weight: 84 kg

DRUGS (6)
  1. ENBREL [Suspect]
     Indication: ANKYLOSING SPONDYLITIS
     Dosage: 25 mg, every 15 days
     Route: 058
     Dates: start: 200907, end: 201202
  2. FOLIC ACID [Concomitant]
     Dosage: UNK UNK, UNK
  3. VITAMIN B [Concomitant]
     Dosage: UNK UNK, UNK
  4. DICLOFENAC SODIUM [Concomitant]
     Dosage: UNK UNK, UNK
  5. CALCIUM [Concomitant]
     Dosage: UNK UNK, UNK
  6. METHOTREXATE [Concomitant]
     Dosage: UNK UNK, UNK

REACTIONS (2)
  - Ankylosing spondylitis [Not Recovered/Not Resolved]
  - Pain [Not Recovered/Not Resolved]
